FAERS Safety Report 18333069 (Version 1)
Quarter: 2020Q3

REPORT INFORMATION
  Report Type: Report from Study
  Country: SG (occurrence: SG)
  Receive Date: 20200930
  Receipt Date: 20200930
  Transmission Date: 20201103
  Serious: Yes (Hospitalization)
  Sender: FDA-Public Use
  Company Number: SG-ROCHE-2680659

PATIENT
  Age: 54 Year
  Sex: Female
  Weight: 72.6 kg

DRUGS (34)
  1. MESNA. [Suspect]
     Active Substance: MESNA
     Indication: B-CELL LYMPHOMA
     Route: 042
     Dates: start: 20200418
  2. MORPHINE [Concomitant]
     Active Substance: MORPHINE
     Dates: start: 20200228
  3. DEXAMETHASONE. [Suspect]
     Active Substance: DEXAMETHASONE
     Indication: B-CELL LYMPHOMA
     Route: 048
     Dates: start: 20200302
  4. BETAMETHASONE. [Concomitant]
     Active Substance: BETAMETHASONE
     Dates: start: 20200518, end: 20200528
  5. DAPSONE. [Concomitant]
     Active Substance: DAPSONE
     Dates: start: 20200311
  6. DIPHENHYDRAMINE. [Concomitant]
     Active Substance: DIPHENHYDRAMINE
     Dates: start: 20200517, end: 20200519
  7. GLYCEROL [Concomitant]
     Active Substance: GLYCERIN
     Dates: start: 20200518
  8. HYDROCORTISONE. [Concomitant]
     Active Substance: HYDROCORTISONE
     Dates: start: 20200519, end: 20200519
  9. LEVOFLOXACIN. [Concomitant]
     Active Substance: LEVOFLOXACIN
     Dates: start: 20200511, end: 20200516
  10. OMEPRAZOLE. [Concomitant]
     Active Substance: OMEPRAZOLE
     Dates: start: 20200228, end: 20200518
  11. CYTOSAR [Suspect]
     Active Substance: CYTARABINE
     Indication: B-CELL LYMPHOMA
     Route: 042
     Dates: start: 20200304
  12. FEXOFENADINE [Concomitant]
     Active Substance: FEXOFENADINE HYDROCHLORIDE
     Dates: start: 20200517
  13. HYDROXYZINE [Concomitant]
     Active Substance: HYDROXYZINE HYDROCHLORIDE
     Dates: start: 20200517, end: 20200519
  14. ETOPOSIDE. [Suspect]
     Active Substance: ETOPOSIDE
     Indication: B-CELL LYMPHOMA
     Route: 042
     Dates: start: 20200417
  15. CHOLINE SALICYLATE [Concomitant]
     Active Substance: CHOLINE SALICYLATE
     Dates: start: 20200420
  16. SENNOSIDES. [Concomitant]
     Active Substance: SENNOSIDES
     Dates: start: 20200301
  17. ACICLOVIR [Concomitant]
     Active Substance: ACYCLOVIR
     Dates: start: 20200302
  18. GRANISETRON [Concomitant]
     Active Substance: GRANISETRON
     Dates: start: 20200519, end: 20200521
  19. LACTULOSE. [Concomitant]
     Active Substance: LACTULOSE
     Dates: start: 20200305
  20. METOCLOPRAMIDE. [Concomitant]
     Active Substance: METOCLOPRAMIDE
     Dates: start: 20200225
  21. PEGFILGRASTIM [Concomitant]
     Active Substance: PEGFILGRASTIM
     Dates: start: 20200523, end: 20200523
  22. TETRACYCLINE [Concomitant]
     Active Substance: TETRACYCLINE
     Dates: start: 20200512, end: 20200518
  23. TRAMADOL. [Concomitant]
     Active Substance: TRAMADOL
     Dates: start: 20200224
  24. CARBOPLATIN. [Suspect]
     Active Substance: CARBOPLATIN
     Indication: B-CELL LYMPHOMA
     Route: 042
     Dates: start: 20200418
  25. CISPLATIN. [Suspect]
     Active Substance: CISPLATIN
     Indication: B-CELL LYMPHOMA
     Route: 042
     Dates: start: 20200303
  26. DEXAMETHASONE. [Suspect]
     Active Substance: DEXAMETHASONE
     Route: 048
     Dates: start: 20200519, end: 20200521
  27. GAVISCON [Concomitant]
     Active Substance: ALUMINUM HYDROXIDE\MAGNESIUM CARBONATE
     Dates: start: 20200529, end: 20200531
  28. RITUXIMAB. [Suspect]
     Active Substance: RITUXIMAB
     Indication: B-CELL LYMPHOMA
     Route: 065
     Dates: start: 20200302
  29. IFOSFAMIDE. [Suspect]
     Active Substance: IFOSFAMIDE
     Indication: B-CELL LYMPHOMA
     Route: 042
     Dates: start: 20200418
  30. POTASSIUM CHLORIDE. [Concomitant]
     Active Substance: POTASSIUM CHLORIDE
     Dates: start: 20200529, end: 20200603
  31. LIDOCAINE. [Concomitant]
     Active Substance: LIDOCAINE
     Dates: start: 20200520, end: 20200531
  32. PARACETAMOL [Concomitant]
     Active Substance: ACETAMINOPHEN
     Dates: start: 20200304
  33. PREGABALIN. [Concomitant]
     Active Substance: PREGABALIN
     Dates: start: 20200229
  34. PROCODIN [Concomitant]
     Active Substance: CODEINE PHOSPHATE\PROMETHAZINE HYDROCHLORIDE
     Dates: start: 20200529, end: 20200531

REACTIONS (5)
  - White blood cell count decreased [Recovered/Resolved]
  - Febrile neutropenia [Recovered/Resolved]
  - Platelet count decreased [Recovered/Resolved]
  - Haemoglobin decreased [Recovered/Resolved]
  - C-reactive protein increased [Recovered/Resolved]

NARRATIVE: CASE EVENT DATE: 20200529
